FAERS Safety Report 8463438-1 (Version None)
Quarter: 2012Q2

REPORT INFORMATION
  Report Type: 
  Country: None (occurrence: None)
  Receive Date: 20120625
  Receipt Date: 20120614
  Transmission Date: 20120825
  Serious: Yes (Other)
  Sender: FDA-Public Use
  Company Number: JP-MERCK-1206USA03124

PATIENT
  Age: 50 Year
  Sex: Female

DRUGS (2)
  1. STROMECTOL [Suspect]
     Indication: ACARODERMATITIS
     Route: 048
     Dates: start: 20120604, end: 20120604
  2. STROMECTOL [Suspect]
     Route: 048
     Dates: start: 20120611, end: 20120611

REACTIONS (1)
  - PERIPHERAL NERVE PALSY [None]
